FAERS Safety Report 4864340-4 (Version None)
Quarter: 2005Q4

REPORT INFORMATION
  Report Type: 
  Country: None (occurrence: None)
  Receive Date: 20051221
  Receipt Date: 20051221
  Transmission Date: 20060501
  Serious: Yes (Life-Threatening, Other)
  Sender: FDA-Public Use
  Company Number: None

PATIENT
  Age: 38 Year
  Sex: Female
  Weight: 55.5656 kg

DRUGS (1)
  1. COPAXONE [Suspect]
     Dosage: 20 MG DAILY SUBCUTANEOUS
     Route: 058
     Dates: start: 20050801, end: 20051212

REACTIONS (20)
  - ANAPHYLACTIC REACTION [None]
  - BUTTOCK PAIN [None]
  - CHEST PAIN [None]
  - DIARRHOEA [None]
  - DRUG INTOLERANCE [None]
  - DYSPNOEA [None]
  - ERYTHEMA [None]
  - FALL [None]
  - FLUSHING [None]
  - HYPOAESTHESIA [None]
  - MOANING [None]
  - PALLOR [None]
  - PHOTOPSIA [None]
  - SWELLING FACE [None]
  - TREMOR [None]
  - URTICARIA [None]
  - VAGINAL HAEMORRHAGE [None]
  - VISUAL DISTURBANCE [None]
  - VOMITING [None]
  - WHEEZING [None]
